FAERS Safety Report 12485246 (Version 1)
Quarter: 2016Q2

REPORT INFORMATION
  Report Type: Report from Study
  Country: US (occurrence: US)
  Receive Date: 20160621
  Receipt Date: 20160621
  Transmission Date: 20160815
  Serious: Yes (Hospitalization)
  Sender: FDA-Public Use
  Company Number: US-SA-2015SA069234

PATIENT
  Age: 41 Year
  Sex: Female

DRUGS (2)
  1. LEMTRADA [Suspect]
     Active Substance: ALEMTUZUMAB
     Indication: MULTIPLE SCLEROSIS
     Route: 041
     Dates: start: 20160524, end: 20160526
  2. LEMTRADA [Suspect]
     Active Substance: ALEMTUZUMAB
     Indication: MULTIPLE SCLEROSIS
     Route: 041
     Dates: start: 20150330, end: 20150403

REACTIONS (11)
  - Condition aggravated [Not Recovered/Not Resolved]
  - Condition aggravated [Recovering/Resolving]
  - Blood sodium decreased [Unknown]
  - Asthenia [Recovering/Resolving]
  - Paraesthesia [Recovering/Resolving]
  - Hypoaesthesia [Recovering/Resolving]
  - Paraesthesia [Not Recovered/Not Resolved]
  - Hypoaesthesia [Not Recovered/Not Resolved]
  - Malaise [Recovering/Resolving]
  - Asthenia [Not Recovered/Not Resolved]
  - Dyspnoea [Not Recovered/Not Resolved]

NARRATIVE: CASE EVENT DATE: 201505
